FAERS Safety Report 6282672-2 (Version None)
Quarter: 2009Q3

REPORT INFORMATION
  Report Type: 
  Country: None (occurrence: None)
  Receive Date: 20090724
  Receipt Date: 20090721
  Transmission Date: 20100115
  Serious: Yes (Death)
  Sender: FDA-Public Use
  Company Number: PHHY2008GB25509

PATIENT
  Age: 10 Month
  Sex: Male

DRUGS (2)
  1. CATAFLAM [Suspect]
     Indication: PYREXIA
     Dosage: 15 MG/ML
  2. AMOXICILLIN [Concomitant]
     Indication: PHARYNGITIS

REACTIONS (1)
  - CHILD MALTREATMENT SYNDROME [None]
